FAERS Safety Report 5963053-5 (Version None)
Quarter: 2008Q4

REPORT INFORMATION
  Report Type: 
  Country: None (occurrence: None)
  Receive Date: 20081120
  Receipt Date: 20081106
  Transmission Date: 20090506
  Serious: Yes (Hospitalization)
  Sender: FDA-Public Use
  Company Number: 2008AP001618

PATIENT
  Age: 68 Year
  Sex: Male

DRUGS (4)
  1. DESMOPRESSIN ACETATE [Suspect]
     Indication: DIABETES INSIPIDUS
     Dosage: 3 SPR; BID; NAS
     Route: 045
     Dates: start: 20060101
  2. DESMOPRESSIN ACETATE [Suspect]
  3. SERTERALINE [Concomitant]
  4. METFORMIN HCL [Concomitant]

REACTIONS (3)
  - ANOREXIA [None]
  - FATIGUE [None]
  - JAUNDICE [None]
